FAERS Safety Report 7623438-8 (Version None)
Quarter: 2011Q3

REPORT INFORMATION
  Report Type: 
  Country: None (occurrence: None)
  Receive Date: 20110720
  Receipt Date: 20110705
  Transmission Date: 20111222
  Serious: Yes (Other)
  Sender: FDA-Public Use
  Company Number: RU-SANOFI-AVENTIS-2011SA044360

PATIENT
  Age: 72 Year
  Sex: Female
  Weight: 65 kg

DRUGS (10)
  1. BISOPROLOL [Concomitant]
     Route: 065
  2. DIGOXIN [Concomitant]
     Route: 065
     Dates: start: 20110224
  3. ALDOSTERONE [Concomitant]
     Route: 065
     Dates: start: 20110224
  4. FUROSEMIDE [Concomitant]
     Route: 065
     Dates: start: 20110224, end: 20110225
  5. LISINOPRIL [Concomitant]
     Route: 065
     Dates: start: 20110510
  6. DRONEDARONE HCL [Suspect]
     Indication: ATRIAL FIBRILLATION
     Route: 048
     Dates: start: 20110128
  7. ASPIRIN [Concomitant]
     Route: 065
  8. WARFARIN SODIUM [Concomitant]
     Route: 065
  9. ENALAPRIL MALEATE [Concomitant]
     Route: 065
     Dates: end: 20110509
  10. SIMVASTATIN [Concomitant]
     Route: 065

REACTIONS (1)
  - CARDIAC FAILURE [None]
